FAERS Safety Report 23992395 (Version 1)
Quarter: 2024Q2

REPORT INFORMATION
  Report Type: Spontaneous
  Country: US (occurrence: US)
  Receive Date: 20240620
  Receipt Date: 20240620
  Transmission Date: 20240716
  Serious: Yes (Hospitalization)
  Sender: FDA-Public Use
  Company Number: US-HALEON-2182111

PATIENT

DRUGS (2)
  1. ROBITUSSIN MAXIMUM STRENGTH NIGHTTIME COUGH DM [Suspect]
     Active Substance: DEXTROMETHORPHAN HYDROBROMIDE\DOXYLAMINE SUCCINATE
     Indication: Cough
  2. ROBITUSSIN MAXIMUM STRENGTH NIGHTTIME COUGH DM [Suspect]
     Active Substance: DEXTROMETHORPHAN HYDROBROMIDE\DOXYLAMINE SUCCINATE
     Indication: Laryngitis
     Dates: start: 20231107

REACTIONS (7)
  - Pneumonia fungal [Unknown]
  - Blood pressure decreased [Unknown]
  - Recalled product administered [Unknown]
  - Asthenia [Unknown]
  - Dizziness [Unknown]
  - Autoimmune disorder [Unknown]
  - Blood immunoglobulin G decreased [Unknown]

NARRATIVE: CASE EVENT DATE: 20231107
